FAERS Safety Report 13764617 (Version 2)
Quarter: 2018Q3

REPORT INFORMATION
  Report Type: Spontaneous
  Country: US (occurrence: US)
  Receive Date: 20170718
  Receipt Date: 20180717
  Transmission Date: 20181010
  Serious: No
  Sender: FDA-Public Use
  Company Number: US-BAUSCH-BL-2017-003971

PATIENT
  Age: 57 Year
  Sex: Male
  Weight: 113.5 kg

DRUGS (2)
  1. XIFAXAN [Suspect]
     Active Substance: RIFAXIMIN
     Indication: HEPATIC FAILURE
     Dosage: ABOUT 2 YEARS AGO
     Route: 065
     Dates: start: 2016, end: 20170205
  2. XIFAXAN [Suspect]
     Active Substance: RIFAXIMIN
     Indication: HEPATIC CIRRHOSIS
     Route: 048
     Dates: start: 20180107

REACTIONS (6)
  - Tremor [Unknown]
  - Blood glucose decreased [Unknown]
  - Amnesia [Unknown]
  - Treatment noncompliance [Unknown]
  - Drooling [Unknown]
  - Dizziness [Unknown]

NARRATIVE: CASE EVENT DATE: 20170205
